FAERS Safety Report 7506281-X (Version None)
Quarter: 2011Q2

REPORT INFORMATION
  Report Type: 
  Country: None (occurrence: None)
  Receive Date: 20110526
  Receipt Date: 20110512
  Transmission Date: 20111010
  Serious: Yes (Hospitalization)
  Sender: FDA-Public Use
  Company Number: PHHY2011CA36950

PATIENT
  Sex: Male

DRUGS (2)
  1. ZOLEDRONIC ACID [Suspect]
     Indication: OSTEOPOROSIS
     Dosage: 5 MG
     Route: 042
     Dates: start: 20100630
  2. ZOLEDRONIC ACID [Suspect]
     Dosage: 5 MG
     Route: 042
     Dates: start: 20110409

REACTIONS (3)
  - PNEUMONIA [None]
  - BONE PAIN [None]
  - INAPPROPRIATE SCHEDULE OF DRUG ADMINISTRATION [None]
